FAERS Safety Report 11855383 (Version 1)
Quarter: 2015Q4

REPORT INFORMATION
  Report Type: Spontaneous
  Country: US (occurrence: US)
  Receive Date: 20151221
  Receipt Date: 20151221
  Transmission Date: 20160305
  Serious: No
  Sender: FDA-Public Use
  Company Number: US-MYLANLABS-2015M1034297

PATIENT
  Age: 7 Day

DRUGS (1)
  1. PAMIDRONATE DISODIUM INJECTION [Suspect]
     Active Substance: PAMIDRONATE DISODIUM
     Indication: BLOOD CALCIUM ABNORMAL
     Dosage: UNK, ONCE
     Route: 042
     Dates: start: 20150930, end: 20150930

REACTIONS (2)
  - No adverse event [Unknown]
  - Off label use [Unknown]

NARRATIVE: CASE EVENT DATE: 20150930
